FAERS Safety Report 25020789 (Version 1)
Quarter: 2025Q1

REPORT INFORMATION
  Report Type: Spontaneous
  Country: US (occurrence: US)
  Receive Date: 20250227
  Receipt Date: 20250227
  Transmission Date: 20250409
  Serious: Yes (Other)
  Sender: MYLAN
  Company Number: US-MYLANLABS-2025M1016144

PATIENT
  Age: 59 Year
  Sex: Female

DRUGS (5)
  1. TACROLIMUS [Suspect]
     Active Substance: TACROLIMUS
     Indication: Eosinophilic cellulitis
  2. CETIRIZINE [Suspect]
     Active Substance: CETIRIZINE HYDROCHLORIDE
     Indication: Eosinophilic cellulitis
  3. CLOBETASOL [Suspect]
     Active Substance: CLOBETASOL
     Indication: Eosinophilic cellulitis
  4. DUPILUMAB [Concomitant]
     Active Substance: DUPILUMAB
     Indication: Dermatitis atopic
  5. PREDNISONE [Concomitant]
     Active Substance: PREDNISONE
     Indication: Eosinophilic cellulitis

REACTIONS (1)
  - Drug ineffective [Unknown]
